FAERS Safety Report 11672031 (Version 1)
Quarter: 2015Q4

REPORT INFORMATION
  Report Type: Report from Study
  Country: US (occurrence: US)
  Receive Date: 20151028
  Receipt Date: 20151028
  Transmission Date: 20160304
  Serious: Yes (Other)
  Sender: FDA-Public Use
  Company Number: PHEH2015US009117

PATIENT
  Sex: Female

DRUGS (1)
  1. MYFORTIC [Suspect]
     Active Substance: MYCOPHENOLATE SODIUM
     Indication: PRODUCT USED FOR UNKNOWN INDICATION
     Dosage: 720 MG, QD
     Route: 048

REACTIONS (11)
  - Escherichia urinary tract infection [Unknown]
  - Retinopathy [Unknown]
  - Hyperglycaemia [Unknown]
  - Temperature intolerance [Unknown]
  - Depression [Unknown]
  - Rash [Unknown]
  - Headache [Unknown]
  - Blood creatinine increased [Unknown]
  - Pruritus [Unknown]
  - Back pain [Unknown]
  - Arthralgia [Unknown]
